FAERS Safety Report 6892898-2 (Version None)
Quarter: 2010Q3

REPORT INFORMATION
  Report Type: 
  Country: None (occurrence: None)
  Receive Date: 20100731
  Receipt Date: 20081029
  Transmission Date: 20110219
  Serious: No
  Sender: FDA-Public Use
  Company Number: US-PFIZER INC-2008090704

PATIENT
  Sex: Female
  Weight: 77.11 kg

DRUGS (2)
  1. AMLODIPINE [Suspect]
     Indication: HYPERTENSION
     Dates: end: 20081001
  2. SYNTHROID [Concomitant]
     Indication: THYROID DISORDER

REACTIONS (1)
  - DRUG INEFFECTIVE [None]
